FAERS Safety Report 12570060 (Version 3)
Quarter: 2016Q3

REPORT INFORMATION
  Report Type: Spontaneous
  Country: IT (occurrence: JP)
  Receive Date: 20160719
  Receipt Date: 20160912
  Transmission Date: 20161109
  Serious: Yes (Hospitalization)
  Sender: FDA-Public Use
  Company Number: IT-SIGMA-TAU US-2016STPI000511

PATIENT
  Age: 69 Year
  Sex: Female

DRUGS (2)
  1. CARNITOR [Suspect]
     Active Substance: LEVOCARNITINE
     Indication: DIALYSIS
     Dosage: 20 MG/KG, QD
     Route: 042
     Dates: start: 20160706, end: 20160706
  2. CARNITOR [Suspect]
     Active Substance: LEVOCARNITINE
     Dosage: 1000 MG, QD
     Route: 042
     Dates: start: 20160706, end: 20160706

REACTIONS (1)
  - Anaphylactic shock [Recovered/Resolved]

NARRATIVE: CASE EVENT DATE: 20160706
